FAERS Safety Report 8359084-0 (Version None)
Quarter: 2012Q2

REPORT INFORMATION
  Report Type: 
  Country: None (occurrence: None)
  Receive Date: 20120515
  Receipt Date: 20120509
  Transmission Date: 20120825
  Serious: No
  Sender: FDA-Public Use
  Company Number: US-BIOGENIDEC-2011BI046343

PATIENT
  Age: 58 Year
  Sex: Female

DRUGS (3)
  1. AVONEX [Suspect]
     Route: 030
  2. OXCARBAZEPINE [Concomitant]
     Indication: PROPHYLAXIS
  3. AVONEX [Suspect]
     Indication: MULTIPLE SCLEROSIS
     Route: 030
     Dates: start: 20111205

REACTIONS (11)
  - INFLUENZA LIKE ILLNESS [None]
  - MUSCLE SPASMS [None]
  - HERPES ZOSTER [None]
  - DRY MOUTH [None]
  - HEADACHE [None]
  - INJECTION SITE HAEMATOMA [None]
  - INJECTION SITE HAEMORRHAGE [None]
  - INJECTION SITE PAIN [None]
  - DECREASED APPETITE [None]
  - FEELING OF BODY TEMPERATURE CHANGE [None]
  - NAUSEA [None]
